FAERS Safety Report 7813836-1 (Version None)
Quarter: 2011Q4

REPORT INFORMATION
  Report Type: 
  Country: None (occurrence: None)
  Receive Date: 20111014
  Receipt Date: 20111007
  Transmission Date: 20120403
  Serious: Yes (Hospitalization)
  Sender: FDA-Public Use
  Company Number: CA-JNJFOC-20111004611

PATIENT
  Sex: Male
  Weight: 102.06 kg

DRUGS (2)
  1. STELARA [Suspect]
     Indication: PSORIASIS
     Route: 058
     Dates: start: 20060301
  2. STELARA [Suspect]
     Route: 058
     Dates: start: 20110714

REACTIONS (1)
  - SYNCOPE [None]
